FAERS Safety Report 21574388 (Version 2)
Quarter: 2022Q4

REPORT INFORMATION
  Report Type: Spontaneous
  Country: AT (occurrence: AT)
  Receive Date: 20221109
  Receipt Date: 20221117
  Transmission Date: 20230113
  Serious: Yes (Hospitalization)
  Sender: FDA-Public Use
  Company Number: AT-VER-202200008

PATIENT
  Age: 76 Year
  Sex: Male

DRUGS (3)
  1. TRIPTORELIN PAMOATE [Suspect]
     Active Substance: TRIPTORELIN PAMOATE
     Indication: Neoplasm prostate
     Route: 065
     Dates: start: 20221011
  2. UNSPECIFIED INGREDIENT [Concomitant]
     Active Substance: UNSPECIFIED INGREDIENT
     Indication: Blood cholesterol increased
     Route: 065
  3. MEPRIL [Concomitant]
     Indication: Blood pressure abnormal
     Route: 065

REACTIONS (3)
  - Abdominal pain [Unknown]
  - Blood pressure increased [Unknown]
  - Presyncope [Unknown]
